FAERS Safety Report 24592484 (Version 1)
Quarter: 2024Q4

REPORT INFORMATION
  Report Type: Spontaneous
  Country: PL (occurrence: PL)
  Receive Date: 20241108
  Receipt Date: 20241108
  Transmission Date: 20250115
  Serious: Yes (Other)
  Sender: TEVA
  Company Number: PL-TEVA-VS-3261322

PATIENT
  Age: 71 Year
  Sex: Female

DRUGS (2)
  1. METHOTREXATE [Suspect]
     Active Substance: METHOTREXATE
     Indication: Generalised pustular psoriasis
     Route: 065
  2. ACITRETIN [Suspect]
     Active Substance: ACITRETIN
     Indication: Generalised pustular psoriasis
     Route: 065

REACTIONS (1)
  - Drug-induced liver injury [Unknown]
